FAERS Safety Report 16847507 (Version 1)
Quarter: 2019Q3

REPORT INFORMATION
  Report Type: Other
  Country: US (occurrence: US)
  Receive Date: 20190924
  Receipt Date: 20190924
  Transmission Date: 20191005
  Serious: No
  Sender: FDA-Public Use
  Company Number: US-ACORDA-ACO_159771_2019

PATIENT
  Age: 72 Year
  Sex: Male

DRUGS (2)
  1. INBRIJA [Suspect]
     Active Substance: LEVODOPA
     Indication: PARKINSON^S DISEASE
     Dosage: 84 MILLIGRAM, PRN, UP TO 5 TIMES PER DAY
     Dates: start: 20190701, end: 20190703
  2. CARBIDOPA AND LEVODOPA [Concomitant]
     Active Substance: CARBIDOPA\LEVODOPA
     Indication: PRODUCT USED FOR UNKNOWN INDICATION
     Dosage: 4 DOSAGE FORM, EVERY 3 HOURS
     Route: 048

REACTIONS (9)
  - Paraesthesia [Recovered/Resolved]
  - Product storage error [Unknown]
  - Product container issue [Unknown]
  - Incorrect dose administered [Recovered/Resolved]
  - Gait disturbance [Recovered/Resolved]
  - Parkinson^s disease [Unknown]
  - Muscular weakness [Recovered/Resolved]
  - Hypoaesthesia [Recovered/Resolved]
  - Hypokinesia [Recovered/Resolved]

NARRATIVE: CASE EVENT DATE: 20190701
